FAERS Safety Report 21406832 (Version 1)
Quarter: 2022Q4

REPORT INFORMATION
  Report Type: Spontaneous
  Country: DE (occurrence: DE)
  Receive Date: 20221004
  Receipt Date: 20221004
  Transmission Date: 20230113
  Serious: Yes (Other)
  Sender: FDA-Public Use
  Company Number: DE-BIOCODEX2-201300936

PATIENT
  Age: 12 Year
  Sex: Male
  Weight: 62 kg

DRUGS (8)
  1. METHSUXIMIDE [Suspect]
     Active Substance: METHSUXIMIDE
     Indication: Severe myoclonic epilepsy of infancy
     Dosage: 750 MG, 1X/DAY
     Route: 065
  2. DIACOMIT [Suspect]
     Active Substance: STIRIPENTOL
     Indication: Severe myoclonic epilepsy of infancy
     Dosage: 3000 MG, 1X/DAY
     Route: 065
  3. DIACOMIT [Suspect]
     Active Substance: STIRIPENTOL
     Dosage: 2500 MG, 1X/DAY
     Route: 065
  4. CLOBAZAM [Suspect]
     Active Substance: CLOBAZAM
     Indication: Severe myoclonic epilepsy of infancy
     Dosage: 20 MG, 1X/DAY
     Route: 065
  5. CLOBAZAM [Suspect]
     Active Substance: CLOBAZAM
     Dosage: 30 MG
     Route: 065
  6. POTASSIUM BROMIDE [Suspect]
     Active Substance: POTASSIUM BROMIDE
     Indication: Severe myoclonic epilepsy of infancy
     Dosage: 3.8 G, 1X/DAY
     Route: 065
  7. POTASSIUM BROMIDE [Suspect]
     Active Substance: POTASSIUM BROMIDE
     Dosage: 1.7 G, 1X/DAY
     Route: 065
  8. VALPROATE [Concomitant]
     Active Substance: VALPROIC ACID
     Indication: Severe myoclonic epilepsy of infancy
     Dosage: 900 MG, 1X/DAY
     Route: 065

REACTIONS (11)
  - Petit mal epilepsy [Recovered/Resolved]
  - Generalised tonic-clonic seizure [Recovered/Resolved]
  - Condition aggravated [Recovered/Resolved]
  - Insomnia [Recovered/Resolved]
  - Eating disorder [Recovered/Resolved]
  - Decreased appetite [Recovered/Resolved]
  - Apathy [Recovered/Resolved]
  - Weight increased [Unknown]
  - Fatigue [Recovered/Resolved]
  - Drug ineffective [Unknown]
  - Off label use [Unknown]
